FAERS Safety Report 21519599 (Version 1)
Quarter: 2022Q4

REPORT INFORMATION
  Report Type: Spontaneous
  Country: US (occurrence: US)
  Receive Date: 20221028
  Receipt Date: 20221028
  Transmission Date: 20230113
  Serious: Yes (Life-Threatening, Hospitalization)
  Sender: FDA-Public Use
  Company Number: US-MYLANLABS-2022M1118156

PATIENT
  Age: 12 Year

DRUGS (5)
  1. AMLODIPINE [Suspect]
     Active Substance: AMLODIPINE BESYLATE
     Indication: Product used for unknown indication
     Dosage: UNK
     Route: 048
  2. INSULIN GLARGINE [Suspect]
     Active Substance: INSULIN GLARGINE
     Indication: Hypotension
     Dosage: 80 INTERNATIONAL UNIT/KILOGRAM, QH
     Route: 065
  3. INSULIN GLARGINE [Suspect]
     Active Substance: INSULIN GLARGINE
     Dosage: 20 INTERNATIONAL UNIT/KILOGRAM, QH
     Route: 065
  4. NOREPINEPHRINE [Concomitant]
     Active Substance: NOREPINEPHRINE
     Indication: Intentional overdose
     Dosage: 1 MICROGRAM/KILOGRAM, QMINUTE (INFUSION))
     Route: 065
  5. EPINEPHRINE [Concomitant]
     Active Substance: EPINEPHRINE
     Indication: Intentional overdose
     Dosage: 1 MICROGRAM/KILOGRAM, QMINUTE (INFUSION))
     Route: 065

REACTIONS (5)
  - Intentional overdose [Recovered/Resolved]
  - Hypotension [Recovered/Resolved]
  - Ejection fraction decreased [Recovered/Resolved]
  - Oliguria [Recovered/Resolved]
  - Off label use [Unknown]
